FAERS Safety Report 4754418-8 (Version None)
Quarter: 2005Q3

REPORT INFORMATION
  Report Type: 
  Country: None (occurrence: None)
  Receive Date: 20050829
  Receipt Date: 20050817
  Transmission Date: 20060218
  Serious: Yes (Other)
  Sender: FDA-Public Use
  Company Number: GB-BOEHRINGER INGELHEIM PHARMACEUTICALS, INC.-2005-UK-01543UK

PATIENT
  Age: 84 Year
  Sex: Male
  Weight: 90 kg

DRUGS (4)
  1. SPIRIVA [Suspect]
     Indication: CHRONIC OBSTRUCTIVE PULMONARY DISEASE
     Dosage: 18 MCG ONCE DAILY
     Route: 055
     Dates: start: 20050208, end: 20050418
  2. ALBUTEROL SULFATE HFA [Concomitant]
     Indication: CHRONIC OBSTRUCTIVE PULMONARY DISEASE
     Route: 055
  3. SERETIDE [Concomitant]
     Indication: CHRONIC OBSTRUCTIVE PULMONARY DISEASE
     Dosage: 250 MCG FOUR TIMES DAILY
     Route: 055
     Dates: start: 20040226
  4. IPRATROPIUM BROMIDE [Concomitant]
     Indication: CHRONIC OBSTRUCTIVE PULMONARY DISEASE
     Dosage: 2 PUFFS FOUR TIMES DAILY
     Route: 055
     Dates: start: 20040726

REACTIONS (1)
  - ECZEMA [None]
